FAERS Safety Report 15548646 (Version 4)
Quarter: 2023Q2

REPORT INFORMATION
  Report Type: Spontaneous
  Country: ZA (occurrence: ZA)
  Receive Date: 20181025
  Receipt Date: 20230609
  Transmission Date: 20230721
  Serious: Yes (Other)
  Sender: FDA-Public Use
  Company Number: ZA-PFIZER INC-2018425342

PATIENT
  Age: 60 Year
  Sex: Female
  Weight: 70 kg

DRUGS (2)
  1. ENBREL [Suspect]
     Active Substance: ETANERCEPT
     Indication: Product used for unknown indication
     Dosage: 25 MG, WEEKLY
     Route: 058
     Dates: start: 20061207
  2. METHOTREXATE [Suspect]
     Active Substance: METHOTREXATE
     Indication: Product used for unknown indication
     Dosage: 7.5 MG, WEEKLY
     Route: 048
     Dates: start: 20060101

REACTIONS (9)
  - Off label use [Unknown]
  - Anti-cyclic citrullinated peptide antibody positive [Unknown]
  - Rheumatoid factor positive [Unknown]
  - Rheumatoid factor increased [Unknown]
  - Tender joint count increased [Recovered/Resolved]
  - White blood cell count increased [Recovered/Resolved]
  - Alanine aminotransferase increased [Unknown]
  - Arthritis bacterial [Recovered/Resolved]
  - Animal bite [Recovered/Resolved]

NARRATIVE: CASE EVENT DATE: 20061207
